FAERS Safety Report 9460893 (Version 1)
Quarter: 2013Q3

REPORT INFORMATION
  Report Type: Report from Study
  Country: US (occurrence: US)
  Receive Date: 20130816
  Receipt Date: 20130816
  Transmission Date: 20140515
  Serious: Yes (Death)
  Sender: FDA-Public Use
  Company Number: US-ROCHE-1262502

PATIENT
  Age: 76 Year
  Sex: Male

DRUGS (7)
  1. RITUXAN [Suspect]
     Indication: NON-HODGKIN^S LYMPHOMA
     Dosage: 1L DOSE: 375 MG/M^2
     Route: 065
  2. RITUXAN [Suspect]
     Dosage: 2L DOSE: 375 MG/M2
     Route: 065
  3. CYCLOPHOSPHAMIDE [Concomitant]
  4. DOXORUBICIN [Concomitant]
  5. VINCRISTINE [Concomitant]
  6. PREDNISONE [Concomitant]
  7. TREANDA [Concomitant]

REACTIONS (1)
  - Death [Fatal]
